FAERS Safety Report 19519494 (Version 1)
Quarter: 2021Q3

REPORT INFORMATION
  Report Type: Spontaneous
  Country: US (occurrence: US)
  Receive Date: 20210710
  Receipt Date: 20210710
  Transmission Date: 20211014
  Serious: Yes (Hospitalization)
  Sender: FDA-Public Use
  Company Number: None

PATIENT
  Sex: Female
  Weight: 85.3 kg

DRUGS (2)
  1. LIPO [Concomitant]
  2. BEVACIZUMAB (RHUMAB VEGF) [Suspect]
     Active Substance: BEVACIZUMAB

REACTIONS (9)
  - Peristalsis visible [None]
  - Biliary ascites [None]
  - Nausea [None]
  - Vomiting [None]
  - Gastrointestinal wall thickening [None]
  - Peritoneal disorder [None]
  - Disease progression [None]
  - Diarrhoea [None]
  - Intestinal obstruction [None]

NARRATIVE: CASE EVENT DATE: 20210630
